FAERS Safety Report 20090819 (Version 1)
Quarter: 2021Q4

REPORT INFORMATION
  Report Type: Report from Study
  Country: EG (occurrence: EG)
  Receive Date: 20211119
  Receipt Date: 20211119
  Transmission Date: 20220303
  Serious: Yes (Death, Hospitalization, Other)
  Sender: FDA-Public Use
  Company Number: EG-NOVARTISPH-NVSC2021EG264845

PATIENT
  Age: 61 Year
  Sex: Male

DRUGS (6)
  1. ENTRESTO [Suspect]
     Active Substance: SACUBITRIL\VALSARTAN
     Indication: Cardiac failure
     Dosage: 0.5 DF (100 MG), BID
     Route: 065
     Dates: start: 202106, end: 20211103
  2. CARVEDILOL [Concomitant]
     Active Substance: CARVEDILOL
     Indication: Cardiac disorder
     Dosage: 1 DF, BID
     Route: 048
     Dates: end: 20211103
  3. WARFARIN SODIUM [Concomitant]
     Active Substance: WARFARIN SODIUM
     Indication: Anticoagulant therapy
     Dosage: 1 DF
     Route: 048
  4. LANOXIN [Concomitant]
     Active Substance: DIGOXIN
     Indication: Heart rate abnormal
     Dosage: 1 DF, QD
     Route: 048
     Dates: end: 20211103
  5. TORSEMIDE [Concomitant]
     Active Substance: TORSEMIDE
     Indication: Diuretic therapy
     Dosage: 0.5 DF, QD
     Route: 048
     Dates: end: 20211103
  6. VALSARTAN [Concomitant]
     Active Substance: VALSARTAN
     Indication: Hypertension
     Dosage: 1 DF, QD
     Route: 048
     Dates: end: 20211103

REACTIONS (10)
  - Oedema peripheral [Fatal]
  - Fluid retention [Fatal]
  - Pulmonary oedema [Fatal]
  - Ascites [Fatal]
  - Renal failure [Fatal]
  - Heart rate increased [Fatal]
  - Hypotension [Fatal]
  - Ejection fraction decreased [Fatal]
  - Renal impairment [Fatal]
  - Wrong technique in product usage process [Not Recovered/Not Resolved]

NARRATIVE: CASE EVENT DATE: 20210601
